FAERS Safety Report 20100352 (Version 2)
Quarter: 2022Q1

REPORT INFORMATION
  Report Type: Spontaneous
  Country: US (occurrence: US)
  Receive Date: 20211123
  Receipt Date: 20220218
  Transmission Date: 20220423
  Serious: No
  Sender: FDA-Public Use
  Company Number: US-KARYOPHARM-2021KPT001288

PATIENT

DRUGS (1)
  1. XPOVIO [Suspect]
     Active Substance: SELINEXOR
     Indication: Plasma cell myeloma
     Dosage: 40 MG, WEEKLY
     Route: 048
     Dates: start: 20210909, end: 202112

REACTIONS (11)
  - Hypogeusia [Unknown]
  - White blood cell count decreased [Unknown]
  - Decreased appetite [Unknown]
  - Weight decreased [Not Recovered/Not Resolved]
  - Vomiting [Not Recovered/Not Resolved]
  - Blood creatinine increased [Unknown]
  - Platelet count decreased [Not Recovered/Not Resolved]
  - Asthenia [Unknown]
  - Nausea [Unknown]
  - Red blood cell count decreased [Unknown]
  - Therapeutic product effect decreased [Unknown]

NARRATIVE: CASE EVENT DATE: 20210101
